FAERS Safety Report 8778225 (Version 1)
Quarter: 2012Q4

REPORT INFORMATION
  Report Type: 
  Country: US (occurrence: US)
  Receive Date: 20120911
  Receipt Date: 20120911
  Transmission Date: 20130627
  Serious: No
  Sender: FDA-Public Use
  Company Number: US-BAYER-2012-093831

PATIENT
  Sex: Female

DRUGS (1)
  1. MIRENA [Suspect]
     Dosage: 20 mcg/24hr, UNK
     Route: 015
     Dates: start: 20120604, end: 20120720

REACTIONS (6)
  - Procedural pain [None]
  - Muscle spasms [None]
  - Abdominal distension [None]
  - Muscle tightness [None]
  - Constipation [None]
  - Mood swings [None]
